FAERS Safety Report 4894688-9 (Version None)
Quarter: 2006Q1

REPORT INFORMATION
  Report Type: 
  Country: None (occurrence: None)
  Receive Date: 20060127
  Receipt Date: 20040422
  Transmission Date: 20060701
  Serious: Yes (Hospitalization, Other)
  Sender: FDA-Public Use
  Company Number: US-MERCK-0404USA02013

PATIENT
  Age: 54 Year
  Sex: Female

DRUGS (11)
  1. ZOCOR [Suspect]
     Route: 048
     Dates: start: 20020514, end: 20030611
  2. ZOCOR [Suspect]
     Route: 048
     Dates: start: 20030612, end: 20030711
  3. MOBIC [Concomitant]
     Route: 065
  4. CLONAZEPAM [Concomitant]
     Route: 065
  5. ZANAFLEX [Concomitant]
     Route: 065
  6. DANAZOL [Concomitant]
     Route: 065
  7. SYNTHROID [Concomitant]
     Route: 065
     Dates: start: 20030612
  8. AVALIDE [Concomitant]
     Route: 065
     Dates: start: 20030612
  9. VITAMINS (UNSPECIFIED) [Concomitant]
     Route: 065
  10. EVISTA [Concomitant]
     Route: 065
  11. [THERAPY UNSPECIFIED] [Concomitant]
     Route: 065

REACTIONS (11)
  - ANAEMIA [None]
  - DIABETES MELLITUS [None]
  - FIBROMYALGIA [None]
  - GLYCOGEN STORAGE DISEASE TYPE V [None]
  - HEPATOTOXICITY [None]
  - JOINT SPRAIN [None]
  - LIVER FUNCTION TEST ABNORMAL [None]
  - RENAL FAILURE ACUTE [None]
  - RHABDOMYOLYSIS [None]
  - SEPSIS [None]
  - SINUSITIS [None]
